FAERS Safety Report 6517948-4 (Version None)
Quarter: 2009Q4

REPORT INFORMATION
  Report Type: 
  Country: None (occurrence: None)
  Receive Date: 20091224
  Receipt Date: 20091211
  Transmission Date: 20100525
  Serious: Yes (Other)
  Sender: FDA-Public Use
  Company Number: BR-PFIZER INC-2009308853

PATIENT
  Age: 84 Year
  Sex: Female
  Weight: 53 kg

DRUGS (2)
  1. ALDACTONE [Suspect]
     Indication: PORTAL VEIN PRESSURE INCREASED
     Dosage: UNK
     Route: 048
     Dates: start: 20010101
  2. PROPRANOLOL [Concomitant]
     Dosage: UNK

REACTIONS (2)
  - DIZZINESS [None]
  - SURGERY [None]
